FAERS Safety Report 16655951 (Version 1)
Quarter: 2019Q3

REPORT INFORMATION
  Report Type: Report from Study
  Country: IT (occurrence: IT)
  Receive Date: 20190801
  Receipt Date: 20190801
  Transmission Date: 20191004
  Serious: Yes (Hospitalization)
  Sender: FDA-Public Use
  Company Number: IT-TEVA-2019-IT-1086119

PATIENT
  Age: 87 Year
  Sex: Female

DRUGS (8)
  1. ESOMEPRAZOLE SODIUM. [Concomitant]
     Active Substance: ESOMEPRAZOLE SODIUM
  2. LASIX [Concomitant]
     Active Substance: FUROSEMIDE
  3. COLECALCIFEROL [Concomitant]
     Active Substance: CHOLECALCIFEROL
  4. FOSTER [Concomitant]
     Active Substance: BECLOMETHASONE\FORMOTEROL
  5. SEEBRI BREEZHALER 44 MICROGRAMS INHALATION POWDER, HARD CAPSULES [Concomitant]
  6. CEFTRIAXONE. [Suspect]
     Active Substance: CEFTRIAXONE
     Indication: ANTIBIOTIC THERAPY
     Dosage: 1 DOSAGE FORM
     Route: 042
     Dates: start: 20190430, end: 20190501
  7. SINTROM [Concomitant]
     Active Substance: ACENOCOUMAROL
  8. AMOXICILLINA/ACIDO CLAVULANICO [Suspect]
     Active Substance: AMOXICILLIN\CLAVULANIC ACID
     Indication: ANTIBIOTIC THERAPY
     Dosage: 1 DOSAGE FORM
     Route: 048
     Dates: start: 20190501, end: 20190505

REACTIONS (2)
  - Skin reaction [Recovering/Resolving]
  - Dyspnoea [Recovering/Resolving]

NARRATIVE: CASE EVENT DATE: 20190501
